FAERS Safety Report 5125154-3 (Version None)
Quarter: 2006Q4

REPORT INFORMATION
  Report Type: 
  Country: None (occurrence: None)
  Receive Date: 20061011
  Receipt Date: 20060822
  Transmission Date: 20070319
  Serious: Yes (Death)
  Sender: FDA-Public Use
  Company Number: SG-SANOFI-SYNTHELABO-A01200606751

PATIENT
  Sex: Male
  Weight: 63.5 kg

DRUGS (5)
  1. KYTRIL [Concomitant]
     Dosage: 3 MG IN 100 CC OF NORMAL SALINE
     Route: 042
     Dates: start: 20060818
  2. DEXTROSE 5% [Concomitant]
     Dosage: UNK
     Route: 042
     Dates: start: 20060818
  3. NORVASC [Concomitant]
     Indication: HYPERTENSION
     Dosage: UNK
     Route: 065
  4. ELOXATIN [Suspect]
     Indication: NASOPHARYNGEAL CANCER
     Dosage: 223 MG IN 500 CC D5W
     Route: 042
     Dates: start: 20060818, end: 20060818
  5. ZOMETA [Concomitant]
     Indication: METASTASES TO BONE
     Dosage: 4 MG IN 100 CC
     Route: 042
     Dates: start: 20040601, end: 20060818

REACTIONS (5)
  - ANOXIA [None]
  - CARDIO-RESPIRATORY ARREST [None]
  - DYSPNOEA [None]
  - FALL [None]
  - HYPOXIC ENCEPHALOPATHY [None]
